FAERS Safety Report 4880383-9 (Version None)
Quarter: 2005Q4

REPORT INFORMATION
  Report Type: 
  Country: None (occurrence: None)
  Receive Date: 20051223
  Receipt Date: 20051025
  Transmission Date: 20060501
  Serious: No
  Sender: FDA-Public Use
  Company Number: 05P-163-0313442-00

PATIENT
  Age: 71 Year
  Sex: Male

DRUGS (5)
  1. HUMIRA [Suspect]
     Indication: RHEUMATOID ARTHRITIS
     Dosage: 40 MG, 1 IN 1 WK, SUBCUTANEOUS
     Route: 058
     Dates: start: 20050101, end: 20051018
  2. PREDNISONE [Concomitant]
  3. ESOMEPRAZOLE [Concomitant]
  4. TEMAZEPAM [Concomitant]
  5. SIMVASTATIN [Concomitant]

REACTIONS (1)
  - ABDOMINAL DISTENSION [None]
